FAERS Safety Report 24127321 (Version 2)
Quarter: 2024Q3

REPORT INFORMATION
  Report Type: Report from Study
  Country: FR (occurrence: FR)
  Receive Date: 20240723
  Receipt Date: 20240805
  Transmission Date: 20241017
  Serious: Yes (Death)
  Sender: ROCHE
  Company Number: US-ROCHE-10000027157

PATIENT

DRUGS (3)
  1. TENECTEPLASE [Suspect]
     Active Substance: TENECTEPLASE
     Indication: Cerebral vascular occlusion
     Dosage: MAXIMUM 25 MG (IVT-2)
     Route: 042
  2. TENECTEPLASE [Suspect]
     Active Substance: TENECTEPLASE
     Indication: Cerebrovascular accident
  3. ACTIVASE [Suspect]
     Active Substance: ALTEPLASE
     Indication: Cerebral vascular occlusion
     Dosage: MAXIMUM  90  MG  (IVT-1)
     Route: 065

REACTIONS (5)
  - Haemorrhage intracranial [Fatal]
  - Haemorrhage [Unknown]
  - Haematoma muscle [Unknown]
  - Off label use [Unknown]
  - Off label use [Unknown]
